FAERS Safety Report 9351696 (Version 1)
Quarter: 2013Q2

REPORT INFORMATION
  Report Type: Other
  Country: GB (occurrence: GB)
  Receive Date: 20130617
  Receipt Date: 20130617
  Transmission Date: 20140414
  Serious: Yes (Other)
  Sender: FDA-Public Use
  Company Number: GB-ACTAVIS-2013-10928

PATIENT
  Age: 40 Year
  Sex: Female

DRUGS (3)
  1. TRAMADOL HYDROCHLORIDE (UNKNOWN) [Suspect]
     Indication: PAIN
     Dosage: 50 MG, UNKNOWN
     Route: 048
     Dates: start: 20130429, end: 20130430
  2. NAPROSYN                           /00256201/ [Concomitant]
     Indication: PAIN
     Dosage: 500 MG, UNKNOWN
     Route: 048
     Dates: start: 20130429
  3. AMITRIPTYLINE [Concomitant]
     Indication: PAIN
     Dosage: 10 MG, UNK
     Route: 048
     Dates: start: 20130419

REACTIONS (5)
  - Presyncope [Recovered/Resolved]
  - Dyspnoea [Recovered/Resolved]
  - Asthenia [Recovered/Resolved]
  - Nausea [Recovered/Resolved]
  - Vomiting [Recovered/Resolved]
